FAERS Safety Report 18880842 (Version 1)
Quarter: 2021Q1

REPORT INFORMATION
  Report Type: Report from Study
  Country: CN (occurrence: CN)
  Receive Date: 20210212
  Receipt Date: 20210212
  Transmission Date: 20210420
  Serious: Yes (Other)
  Sender: FDA-Public Use
  Company Number: CN-SUN PHARMACEUTICAL INDUSTRIES LTD-2021R1-279610

PATIENT

DRUGS (4)
  1. CILOSTAZOL. [Suspect]
     Active Substance: CILOSTAZOL
     Indication: ANTIPLATELET THERAPY
     Dosage: 100 MILLIGRAM, BID
     Route: 065
  2. ASPIRIN. [Suspect]
     Active Substance: ASPIRIN
     Indication: ANTIPLATELET THERAPY
     Dosage: 300 MILLIGRAM, DAILY
     Route: 065
  3. CILOSTAZOL. [Suspect]
     Active Substance: CILOSTAZOL
     Dosage: 200 MILLIGRAM 12 HOURS BEFOR STENTING
     Route: 065
  4. CLOPIDOGREL [Suspect]
     Active Substance: CLOPIDOGREL BISULFATE
     Indication: ANTIPLATELET THERAPY
     Dosage: 75 MILLIGRAM, DAILY
     Route: 065

REACTIONS (1)
  - Gastrointestinal haemorrhage [Recovered/Resolved]
